FAERS Safety Report 22003836 (Version 3)
Quarter: 2023Q2

REPORT INFORMATION
  Report Type: Spontaneous
  Country: JP (occurrence: JP)
  Receive Date: 20230217
  Receipt Date: 20230502
  Transmission Date: 20230721
  Serious: Yes (Other)
  Sender: FDA-Public Use
  Company Number: JP-002147023-NVSJ2022JP100627

PATIENT
  Age: 59 Year
  Sex: Female
  Weight: 50 kg

DRUGS (2)
  1. AFINITOR [Suspect]
     Active Substance: EVEROLIMUS
     Indication: Breast cancer recurrent
     Dosage: 10 MG, QD
     Route: 048
     Dates: start: 20170823, end: 20220314
  2. EXEMESTANE [Concomitant]
     Active Substance: EXEMESTANE
     Indication: Breast cancer recurrent
     Dosage: 25 MG, QD
     Route: 065
     Dates: start: 20170823, end: 20220314

REACTIONS (8)
  - Hepatitis B reactivation [Recovered/Resolved]
  - Malaise [Unknown]
  - Diabetes mellitus [Recovering/Resolving]
  - Breast cancer recurrent [Recovering/Resolving]
  - Malignant neoplasm progression [Recovering/Resolving]
  - Pyrexia [Unknown]
  - Cough [Unknown]
  - Drug ineffective [Unknown]

NARRATIVE: CASE EVENT DATE: 20180507
